FAERS Safety Report 22156918 (Version 1)
Quarter: 2023Q1

REPORT INFORMATION
  Report Type: Spontaneous
  Country: US (occurrence: None)
  Receive Date: 20230330
  Receipt Date: 20230330
  Transmission Date: 20230418
  Serious: Yes (unspecified)
  Sender: FDA-Public Use
  Company Number: None

PATIENT
  Age: 66 Year
  Sex: Female
  Weight: 90 kg

DRUGS (1)
  1. TECVAYLI [Suspect]
     Active Substance: TECLISTAMAB-CQYV
     Dates: start: 20230321

REACTIONS (4)
  - Eye pain [None]
  - Photophobia [None]
  - Eye pain [None]
  - Tenderness [None]

NARRATIVE: CASE EVENT DATE: 20230327
